FAERS Safety Report 4360761-7 (Version None)
Quarter: 2004Q2

REPORT INFORMATION
  Report Type: 
  Country: None (occurrence: None)
  Receive Date: 20040517
  Receipt Date: 20040504
  Transmission Date: 20050107
  Serious: Yes (Other)
  Sender: FDA-Public Use
  Company Number: A0509420A

PATIENT
  Age: 59 Year
  Sex: Male

DRUGS (5)
  1. NICODERM CQ [Suspect]
     Indication: EX-SMOKER
     Dosage: 21 MG PER DAY/ TRANSDERMAL
     Route: 062
     Dates: start: 20040430, end: 20040503
  2. WELLBUTRIN [Suspect]
     Indication: EX-SMOKER
     Dosage: 300 MG PER DAY/ ORAL
     Route: 048
     Dates: start: 20040501, end: 20040504
  3. TARKA [Concomitant]
  4. ALPRAZOLAM [Concomitant]
  5. DIURETIC [Concomitant]

REACTIONS (10)
  - BLOOD PRESSURE INCREASED [None]
  - CEREBROVASCULAR ACCIDENT [None]
  - DIZZINESS [None]
  - ERYTHEMA [None]
  - FATIGUE [None]
  - OVERDOSE [None]
  - PRURITUS [None]
  - RASH PAPULAR [None]
  - SENSORY DISTURBANCE [None]
  - SPEECH DISORDER [None]
